FAERS Safety Report 12971095 (Version 3)
Quarter: 2018Q2

REPORT INFORMATION
  Report Type: Spontaneous
  Country: US (occurrence: US)
  Receive Date: 20161123
  Receipt Date: 20180525
  Transmission Date: 20180711
  Serious: No
  Sender: FDA-Public Use
  Company Number: US-JAZZ-2016-US-019044

PATIENT
  Age: 56 Year
  Sex: Female

DRUGS (29)
  1. MS CONTIN [Concomitant]
     Active Substance: MORPHINE SULFATE
  2. TOPAMAX [Concomitant]
     Active Substance: TOPIRAMATE
  3. DICLOFENAC [Concomitant]
     Active Substance: DICLOFENAC
  4. XYREM [Suspect]
     Active Substance: SODIUM OXYBATE
     Indication: CATAPLEXY
     Dosage: 4.5 G, BID
     Route: 048
     Dates: start: 201410
  5. DIAZEPAM. [Concomitant]
     Active Substance: DIAZEPAM
  6. VALIUM [Concomitant]
     Active Substance: DIAZEPAM
  7. DOXEPIN [Concomitant]
     Active Substance: DOXEPIN
  8. PREDNISONE. [Concomitant]
     Active Substance: PREDNISONE
  9. MODAFINIL. [Concomitant]
     Active Substance: MODAFINIL
  10. XANAX [Concomitant]
     Active Substance: ALPRAZOLAM
  11. OXYCODONE AND ACETAMINOPHEN [Concomitant]
     Active Substance: ACETAMINOPHEN\OXYCODONE HYDROCHLORIDE
  12. ABILIFY [Concomitant]
     Active Substance: ARIPIPRAZOLE
  13. OPANA ER [Concomitant]
     Active Substance: OXYMORPHONE HYDROCHLORIDE
  14. HYDROXYCHLOROQUINE SULFATE. [Concomitant]
     Active Substance: HYDROXYCHLOROQUINE SULFATE
  15. XYREM [Suspect]
     Active Substance: SODIUM OXYBATE
     Indication: SOMNOLENCE
     Dosage: 2.25 G, BID
     Route: 048
     Dates: start: 201408, end: 201408
  16. PROMETHAZINE [Concomitant]
     Active Substance: PROMETHAZINE\PROMETHAZINE HYDROCHLORIDE
  17. TOPIRAMATE ER [Concomitant]
  18. LYRICA [Concomitant]
     Active Substance: PREGABALIN
  19. XYREM [Suspect]
     Active Substance: SODIUM OXYBATE
     Indication: NARCOLEPSY
     Dosage: DOSE ADJUSTMENTS
     Route: 048
     Dates: start: 201408, end: 201410
  20. NABUMETONE. [Concomitant]
     Active Substance: NABUMETONE
  21. PREVACID [Concomitant]
     Active Substance: LANSOPRAZOLE
  22. SULFASALAZINE. [Concomitant]
     Active Substance: SULFASALAZINE
  23. TRAZODONE [Concomitant]
     Active Substance: TRAZODONE HYDROCHLORIDE
  24. WELLBUTRIN XL [Concomitant]
     Active Substance: BUPROPION HYDROCHLORIDE
  25. PRAVASTATIN SODIUM. [Concomitant]
     Active Substance: PRAVASTATIN SODIUM
  26. BISOPROLOL FUMARATE AND HYDROCHLOROTHIAZIDE [Concomitant]
     Active Substance: BISOPROLOL FUMARATE\HYDROCHLOROTHIAZIDE
  27. OMEPRAZOLE DR [Concomitant]
     Active Substance: OMEPRAZOLE
  28. LEXAPRO [Concomitant]
     Active Substance: ESCITALOPRAM OXALATE
  29. LIDOCAINE HCL [Concomitant]
     Active Substance: LIDOCAINE HYDROCHLORIDE

REACTIONS (1)
  - Blood cholesterol increased [Recovered/Resolved]

NARRATIVE: CASE EVENT DATE: 201609
